FAERS Safety Report 8319291-X (Version None)
Quarter: 2012Q2

REPORT INFORMATION
  Report Type: 
  Country: None (occurrence: None)
  Receive Date: 20120427
  Receipt Date: 20120418
  Transmission Date: 20120825
  Serious: Yes (Disabling)
  Sender: FDA-Public Use
  Company Number: JP-ASTRAZENECA-2007AP04108

PATIENT
  Age: 45 Year
  Sex: Female
  Weight: 45 kg

DRUGS (5)
  1. CARBOCAIN [Concomitant]
     Indication: EPIDURAL ANAESTHESIA
     Route: 008
     Dates: start: 20070612, end: 20070612
  2. PROPOFOL [Concomitant]
     Indication: SEDATIVE THERAPY
     Route: 042
  3. MARCAINE [Concomitant]
     Indication: SPINAL ANAESTHESIA
     Route: 037
     Dates: start: 20070612, end: 20070612
  4. ROPIVACAINE HYDROCHLORIDE [Suspect]
     Indication: EPIDURAL ANAESTHESIA
     Route: 008
     Dates: start: 20070612, end: 20070614
  5. LIDOCAINE [Concomitant]
     Route: 008

REACTIONS (1)
  - DIPLEGIA [None]
